FAERS Safety Report 11341723 (Version 1)
Quarter: 2015Q3

REPORT INFORMATION
  Report Type: Spontaneous
  Country: CA (occurrence: None)
  Receive Date: 20150803
  Receipt Date: 20150803
  Transmission Date: 20151125
  Serious: Yes (Life-Threatening, Hospitalization, Disabling)
  Sender: FDA-Public Use
  Company Number: None

PATIENT
  Age: 25 Year
  Sex: Male
  Weight: 68.04 kg

DRUGS (5)
  1. PROPRANOLOL [Concomitant]
     Active Substance: PROPRANOLOL\PROPRANOLOL HYDROCHLORIDE
  2. ABILIFY [Suspect]
     Active Substance: ARIPIPRAZOLE
     Indication: DEPRESSION
     Route: 048
     Dates: start: 20140122, end: 20140312
  3. ABILIFY [Suspect]
     Active Substance: ARIPIPRAZOLE
     Indication: ANXIETY
     Route: 048
     Dates: start: 20140122, end: 20140312
  4. VITAMIN E [Concomitant]
     Active Substance: .ALPHA.-TOCOPHEROL
  5. OMEGA 3 [Concomitant]
     Active Substance: OMEGA-3 FATTY ACIDS

REACTIONS (17)
  - Tremor [None]
  - Suicidal ideation [None]
  - Pruritus [None]
  - Emotional distress [None]
  - Drug withdrawal syndrome [None]
  - Emotional disorder [None]
  - Restlessness [None]
  - Agitation [None]
  - Hallucination [None]
  - Tardive dyskinesia [None]
  - Dizziness [None]
  - Confusional state [None]
  - Anxiety [None]
  - Condition aggravated [None]
  - Akathisia [None]
  - Paranoia [None]
  - Impaired work ability [None]

NARRATIVE: CASE EVENT DATE: 20140122
